FAERS Safety Report 6213433-8 (Version None)
Quarter: 2009Q2

REPORT INFORMATION
  Report Type: 
  Country: None (occurrence: None)
  Receive Date: 20090603
  Receipt Date: 20090528
  Transmission Date: 20091009
  Serious: Yes (Hospitalization)
  Sender: FDA-Public Use
  Company Number: US-BRISTOL-MYERS SQUIBB COMPANY-14642037

PATIENT
  Age: 59 Year
  Sex: Female
  Weight: 98 kg

DRUGS (2)
  1. DASATINIB [Suspect]
     Indication: BREAST CANCER METASTATIC
     Dosage: TOTAL DOSE ADMINISTERED: 1470 MG. LAST DOSE ADMINISTERED ON 14MAY09.
     Route: 048
     Dates: start: 20090504
  2. CLINDAMYCIN [Suspect]

REACTIONS (5)
  - DEHYDRATION [None]
  - DIARRHOEA [None]
  - HAEMOGLOBIN ABNORMAL [None]
  - HYPOKALAEMIA [None]
  - URINARY TRACT INFECTION [None]
